FAERS Safety Report 8568711 (Version 2)
Quarter: 2012Q4

REPORT INFORMATION
  Report Type: 
  Country: DE (occurrence: DE)
  Receive Date: 20120518
  Receipt Date: 20120925
  Transmission Date: 20130627
  Serious: Yes (Hospitalization, Other)
  Sender: FDA-Public Use
  Company Number: DE-UCBSA-057128

PATIENT
  Sex: Male

DRUGS (8)
  1. KEPPRA [Suspect]
     Dates: start: 2011
  2. KEPPRA [Suspect]
     Dosage: ADMINISTERED VIA PEG-TUBE
  3. BELOC [Concomitant]
  4. RAMIPRIL [Concomitant]
  5. SPIRONOLACTON [Concomitant]
  6. LASIX [Concomitant]
  7. MARCUMAR [Concomitant]
  8. NEXIUM [Concomitant]

REACTIONS (6)
  - Status epilepticus [Unknown]
  - Cholecystitis [Unknown]
  - Urinary retention [Unknown]
  - Vomiting [Unknown]
  - Abdominal pain [Unknown]
  - Convulsion [Recovered/Resolved]
